FAERS Safety Report 7775819 (Version 5)
Quarter: 2012Q4

REPORT INFORMATION
  Report Type: 
  Country: CH (occurrence: CH)
  Receive Date: 20110127
  Receipt Date: 20120914
  Transmission Date: 20130627
  Serious: Yes (Life-Threatening, Hospitalization)
  Sender: FDA-Public Use
  Company Number: CH-BRISTOL-MYERS SQUIBB COMPANY-15507361

PATIENT
  Age: 66 Year
  Sex: Male
  Weight: 64 kg

DRUGS (12)
  1. ERBITUX SOLN FOR INF [Suspect]
     Indication: HYPOPHARYNGEAL CANCER
     Dosage: No: of inf-4
Dose reduced to 250mg/m2
last dose on 13Dec10
     Route: 042
     Dates: start: 20101103, end: 20101203
  2. ALDACTONE [Concomitant]
     Route: 042
     Dates: end: 20110120
  3. CONCOR [Concomitant]
     Dosage: Enteral
  4. CORDARONE [Concomitant]
     Dosage: Enteral
  5. DIPIPERON [Concomitant]
     Dosage: PEG
  6. ELTROXIN [Concomitant]
  7. NEXIUM [Concomitant]
     Dosage: Enteral
  8. REMERON [Concomitant]
     Dosage: Enteral
  9. PERENTEROL [Concomitant]
     Dosage: Enteral
  10. ZESTRIL [Concomitant]
     Dosage: 0.5/day,enteral
  11. FRAGMIN [Concomitant]
     Route: 058
  12. NOVASOURCE [Concomitant]
     Dosage: 1 df = 500ml,120ml/h 1500ml over 12h,Novasource GI Forte,enteral

REACTIONS (8)
  - Stevens-Johnson syndrome [Recovering/Resolving]
  - Toxic epidermal necrolysis [Recovered/Resolved]
  - Pneumonia aspiration [Recovering/Resolving]
  - Mucosal inflammation [Recovering/Resolving]
  - Dysphagia [Recovering/Resolving]
  - Pain [Recovering/Resolving]
  - General physical health deterioration [Recovering/Resolving]
  - Rash maculo-papular [Recovering/Resolving]
